FAERS Safety Report 20589361 (Version 1)
Quarter: 2022Q1

REPORT INFORMATION
  Report Type: Spontaneous
  Country: IR (occurrence: IR)
  Receive Date: 20220314
  Receipt Date: 20220314
  Transmission Date: 20220424
  Serious: Yes (Death, Other)
  Sender: FDA-Public Use
  Company Number: IR-Accord-257044

PATIENT
  Age: 63 Year
  Sex: Female

DRUGS (1)
  1. METHOTREXATE [Suspect]
     Active Substance: METHOTREXATE
     Indication: Central nervous system lymphoma
     Dosage: FOUR CYCLES OF HIGH-DOSE MTX (3 G/M2)

REACTIONS (3)
  - Pancytopenia [Fatal]
  - Blood creatinine increased [Unknown]
  - Stomatitis [Unknown]
